FAERS Safety Report 18188305 (Version 1)
Quarter: 2020Q3

REPORT INFORMATION
  Report Type: Spontaneous
  Country: US (occurrence: US)
  Receive Date: 20200824
  Receipt Date: 20200824
  Transmission Date: 20201103
  Serious: Yes (Hospitalization)
  Sender: FDA-Public Use
  Company Number: US-ROCHE-2635037

PATIENT
  Sex: Male
  Weight: 83.5 kg

DRUGS (4)
  1. ESBRIET [Suspect]
     Active Substance: PIRFENIDONE
     Dosage: 1 CAP 3 TIMES A DAY FOR 7 DAYS, 2 CAP 3 TIMES DAILY FOR 7 DAYS, 3 CAP 3 TIMES DAILY FOR 7?DAYS
     Route: 048
     Dates: start: 20200515, end: 20200710
  2. ESBRIET [Suspect]
     Active Substance: PIRFENIDONE
     Dosage: 3 CAPSULES 3 TIMES A DAY
     Route: 048
  3. ESBRIET [Suspect]
     Active Substance: PIRFENIDONE
     Route: 048
  4. ESBRIET [Suspect]
     Active Substance: PIRFENIDONE
     Indication: IDIOPATHIC PULMONARY FIBROSIS
     Dosage: 1 CAPSULE 3 TIMES A DAY FOR 7 DAYS,2 CAP 3 TIMES DAILY FOR 7 DAYS, 3 CAP 3 TIMES DAILY FOR 7 DAYS ON
     Route: 048
     Dates: start: 20200515

REACTIONS (3)
  - Hyperaesthesia [Unknown]
  - Sunburn [Unknown]
  - Abdominal pain upper [Unknown]
